FAERS Safety Report 8176342-3 (Version None)
Quarter: 2012Q1

REPORT INFORMATION
  Report Type: 
  Country: None (occurrence: None)
  Receive Date: 20120117
  Receipt Date: 20111220
  Transmission Date: 20120608
  Serious: Yes (Other)
  Sender: FDA-Public Use
  Company Number: D-11-045

PATIENT
  Age: 82 Year
  Sex: Male
  Weight: 95.2554 kg

DRUGS (12)
  1. DOCUSATE [Concomitant]
  2. NASONEX [Concomitant]
  3. MAG-OXIDE [Concomitant]
  4. ASPIRIN [Concomitant]
  5. IPRATROPIUM BROMIDE AND ALBUTEROL SULFATE [Suspect]
     Indication: BRONCHOSPASM
     Dosage: 054
     Route: 055
  6. SINGULAIR [Concomitant]
  7. AMIODARONE HCL [Concomitant]
  8. ROPINIROLE [Concomitant]
  9. TRAZODONE HCL [Concomitant]
  10. METOPROLOL SUCCINATE [Concomitant]
  11. MULTI-VITAMIN [Concomitant]
  12. TRAMADOL HCL [Concomitant]

REACTIONS (1)
  - DYSPHAGIA [None]
